FAERS Safety Report 8793085 (Version 2)
Quarter: 2015Q2

REPORT INFORMATION
  Report Type: Report from Study
  Country: US (occurrence: US)
  Receive Date: 20120917
  Receipt Date: 20150401
  Transmission Date: 20150821
  Serious: Yes (Death, Hospitalization)
  Sender: FDA-Public Use
  Company Number: US-ROCHE-1126720

PATIENT
  Sex: Female
  Weight: 92.16 kg

DRUGS (23)
  1. VITAMIN B12 [Concomitant]
     Active Substance: CYANOCOBALAMIN
     Route: 065
  2. AVASTIN [Suspect]
     Active Substance: BEVACIZUMAB
     Indication: BREAST CANCER FEMALE
     Route: 042
     Dates: start: 20070112
  3. MORPHINE [Concomitant]
     Active Substance: MORPHINE
     Route: 065
  4. VITAMIN B6 [Concomitant]
     Active Substance: PYRIDOXINE HYDROCHLORIDE
     Route: 065
  5. GRANISETRON [Concomitant]
     Active Substance: GRANISETRON
     Route: 065
  6. CYTOXAN [Concomitant]
     Active Substance: CYCLOPHOSPHAMIDE
     Route: 042
  7. TYLENOL [Concomitant]
     Active Substance: ACETAMINOPHEN
  8. BENADRYL [Concomitant]
     Active Substance: DIPHENHYDRAMINE HYDROCHLORIDE
     Route: 042
  9. AVASTIN [Suspect]
     Active Substance: BEVACIZUMAB
     Route: 042
  10. DEXAMETHASONE. [Concomitant]
     Active Substance: DEXAMETHASONE
     Route: 042
  11. PERCOCET [Concomitant]
     Active Substance: ACETAMINOPHEN\OXYCODONE HYDROCHLORIDE
  12. CLARITIN-D 12 HOUR [Concomitant]
     Active Substance: LORATADINE\PSEUDOEPHEDRINE SULFATE
     Route: 065
  13. XELODA [Suspect]
     Active Substance: CAPECITABINE
     Indication: PRODUCT USED FOR UNKNOWN INDICATION
     Route: 048
  14. ALOXI [Concomitant]
     Active Substance: PALONOSETRON HYDROCHLORIDE
     Route: 042
  15. FASLODEX [Concomitant]
     Active Substance: FULVESTRANT
     Route: 042
  16. MORPHINE [Concomitant]
     Active Substance: MORPHINE
     Route: 065
  17. RADIATION THERAPY [Concomitant]
     Active Substance: RADIATION THERAPY
  18. SENOKOT [Concomitant]
     Active Substance: SENNOSIDES
     Route: 065
  19. AMBIEN CR [Concomitant]
     Active Substance: ZOLPIDEM TARTRATE
     Route: 065
  20. TAXOTERE [Concomitant]
     Active Substance: DOCETAXEL
     Route: 042
  21. CIMETIDINE [Concomitant]
     Active Substance: CIMETIDINE
     Route: 042
  22. NEXIUM [Concomitant]
     Active Substance: ESOMEPRAZOLE MAGNESIUM
     Route: 065
  23. ZOLOFT [Concomitant]
     Active Substance: SERTRALINE HYDROCHLORIDE
     Route: 065

REACTIONS (26)
  - Diastolic dysfunction [Unknown]
  - Pain of skin [Unknown]
  - Erythema [Unknown]
  - Pleural effusion [Unknown]
  - Disease progression [Unknown]
  - Ulcer [Unknown]
  - Chest discomfort [Unknown]
  - Rash [Unknown]
  - Fatigue [Unknown]
  - Death [Fatal]
  - Asthenia [Unknown]
  - Cough [Unknown]
  - Gastrooesophageal reflux disease [Unknown]
  - Constipation [Unknown]
  - Radiation necrosis [Unknown]
  - Abdominal pain [Unknown]
  - Decreased appetite [Unknown]
  - Dyspnoea [Unknown]
  - Oedema peripheral [Unknown]
  - Pneumonia [Unknown]
  - Pulmonary embolism [Unknown]
  - Peripheral swelling [Unknown]
  - Hypoxia [Unknown]
  - Necrosis [Unknown]
  - Lymphoedema [Unknown]
  - Weight decreased [Unknown]
